FAERS Safety Report 8199009-4 (Version None)
Quarter: 2012Q1

REPORT INFORMATION
  Report Type: 
  Country: None (occurrence: None)
  Receive Date: 20120309
  Receipt Date: 20120301
  Transmission Date: 20120608
  Serious: Yes (Hospitalization)
  Sender: FDA-Public Use
  Company Number: US-GLAXOSMITHKLINE-A0808472A

PATIENT
  Age: 15 Year
  Sex: Female

DRUGS (11)
  1. KEPPRA [Concomitant]
  2. KLONOPIN [Concomitant]
  3. ZONEGRAN [Concomitant]
  4. LAMICTAL [Suspect]
     Indication: EPILEPSY
     Dosage: 300MG TWICE PER DAY
     Route: 048
     Dates: start: 19910101
  5. DILANTIN [Concomitant]
  6. TORADOL [Concomitant]
  7. OTHER MEDICATIONS [Concomitant]
  8. LYRICA [Concomitant]
  9. PHENOBARBITAL TAB [Concomitant]
  10. ESTRADIOL [Concomitant]
  11. VALIUM [Concomitant]

REACTIONS (4)
  - CONVULSION [None]
  - DRUG EFFECT DECREASED [None]
  - CERVICAL VERTEBRAL FRACTURE [None]
  - BACK PAIN [None]
